FAERS Safety Report 4826338-1 (Version None)
Quarter: 2005Q4

REPORT INFORMATION
  Report Type: 
  Country: None (occurrence: None)
  Receive Date: 20051111
  Receipt Date: 20050923
  Transmission Date: 20060501
  Serious: Yes (Hospitalization)
  Sender: FDA-Public Use
  Company Number: JP-ROCHE-418651

PATIENT
  Age: 80 Year
  Sex: Female

DRUGS (1)
  1. PANALDINE [Suspect]
     Indication: TRANSIENT ISCHAEMIC ATTACK
     Route: 048
     Dates: start: 20021215, end: 20050907

REACTIONS (9)
  - BRADYKINESIA [None]
  - DYSLALIA [None]
  - HAEMOLYTIC ANAEMIA [None]
  - HAEMORRHAGE SUBCUTANEOUS [None]
  - JUDGEMENT IMPAIRED [None]
  - LEUKOCYTOCLASTIC VASCULITIS [None]
  - MOUTH HAEMORRHAGE [None]
  - NERVOUS SYSTEM DISORDER [None]
  - PURPURA [None]
